FAERS Safety Report 24691557 (Version 5)
Quarter: 2025Q1

REPORT INFORMATION
  Report Type: Spontaneous
  Country: US (occurrence: US)
  Receive Date: 20241203
  Receipt Date: 20250319
  Transmission Date: 20250408
  Serious: Yes (Disabling, Other)
  Sender: PFIZER
  Company Number: US-PFIZER INC-PV202400155213

PATIENT
  Age: 32 Year
  Sex: Female
  Weight: 70.7 kg

DRUGS (1)
  1. DEPO-PROVERA [Suspect]
     Active Substance: MEDROXYPROGESTERONE ACETATE
     Indication: Contraception
     Dosage: UNK UNK, EVERY 3 MONTHS
     Dates: start: 19930201, end: 19960401

REACTIONS (9)
  - Cerebrovascular arteriovenous malformation [Unknown]
  - Meningioma [Unknown]
  - Seizure [Unknown]
  - Bone disorder [Not Recovered/Not Resolved]
  - Osteoporosis [Unknown]
  - Infertility [Not Recovered/Not Resolved]
  - Menstrual disorder [Not Recovered/Not Resolved]
  - Visual impairment [Unknown]
  - Hot flush [Unknown]

NARRATIVE: CASE EVENT DATE: 20020101
